FAERS Safety Report 22596798 (Version 1)
Quarter: 2023Q2

REPORT INFORMATION
  Report Type: Report from Study
  Country: US (occurrence: None)
  Receive Date: 20230613
  Receipt Date: 20230613
  Transmission Date: 20230722
  Serious: Yes (Other)
  Sender: FDA-Public Use
  Company Number: US-ROCHE-3365044

PATIENT
  Age: 48 Year

DRUGS (1)
  1. ATEZOLIZUMAB [Suspect]
     Active Substance: ATEZOLIZUMAB
     Indication: Cervix carcinoma
     Route: 065
     Dates: start: 20230515

REACTIONS (1)
  - Stoma site haemorrhage [Unknown]

NARRATIVE: CASE EVENT DATE: 20230605
